FAERS Safety Report 4702242-4 (Version None)
Quarter: 2005Q2

REPORT INFORMATION
  Report Type: 
  Country: None (occurrence: None)
  Receive Date: 20050629
  Receipt Date: 20040616
  Transmission Date: 20051028
  Serious: Yes (Other)
  Sender: FDA-Public Use
  Company Number: US-BRISTOL-MYERS SQUIBB COMPANY-12617916

PATIENT
  Age: 59 Year
  Sex: Male

DRUGS (5)
  1. REYATAZ [Suspect]
     Indication: HIV TEST POSITIVE
     Route: 048
     Dates: start: 20040419, end: 20040515
  2. REYATAZ [Suspect]
     Indication: ACQUIRED IMMUNODEFICIENCY SYNDROME
     Route: 048
     Dates: start: 20040419, end: 20040515
  3. REYATAZ [Suspect]
     Indication: KAPOSI'S SARCOMA
     Route: 048
     Dates: start: 20040419, end: 20040515
  4. ZERIT [Concomitant]
  5. EPIVIR [Concomitant]

REACTIONS (3)
  - HEPATITIS [None]
  - PYREXIA [None]
  - RASH [None]
